FAERS Safety Report 8183894-6 (Version None)
Quarter: 2012Q1

REPORT INFORMATION
  Report Type: 
  Country: None (occurrence: None)
  Receive Date: 20120305
  Receipt Date: 20120302
  Transmission Date: 20120608
  Serious: No
  Sender: FDA-Public Use
  Company Number: US-PFIZER INC-2012057087

PATIENT
  Sex: Female
  Weight: 57.143 kg

DRUGS (5)
  1. CHANTIX [Suspect]
     Indication: SMOKING CESSATION THERAPY
     Dosage: UNK
     Route: 048
  2. CHANTIX [Suspect]
     Dosage: UNK
     Route: 048
     Dates: start: 20120302
  3. SEROQUEL [Concomitant]
     Indication: DEPRESSION
     Dosage: UNK
  4. TRAZODONE [Concomitant]
     Indication: DEPRESSION
     Dosage: UNK
  5. AMBIEN [Concomitant]
     Indication: SLEEP DISORDER
     Dosage: UNK

REACTIONS (1)
  - ABDOMINAL DISTENSION [None]
